FAERS Safety Report 5170859-1 (Version None)
Quarter: 2006Q4

REPORT INFORMATION
  Report Type: 
  Country: None (occurrence: None)
  Receive Date: 20061213
  Receipt Date: 20061204
  Transmission Date: 20070319
  Serious: Yes (Hospitalization)
  Sender: FDA-Public Use
  Company Number: SE-JNJFOC-20061200861

PATIENT
  Age: 73 Year
  Sex: Female

DRUGS (12)
  1. REMICADE [Suspect]
     Indication: RHEUMATOID ARTHRITIS
     Route: 042
  2. ALVEDON [Concomitant]
     Route: 065
  3. TRAMADOL HCL [Concomitant]
     Route: 065
  4. LASIX [Concomitant]
     Route: 065
  5. KALCIDON [Concomitant]
     Route: 065
  6. ZANIDIP [Concomitant]
     Route: 065
  7. LIPITOR [Concomitant]
     Route: 065
  8. SODIUM BICARBONATE [Concomitant]
     Route: 065
  9. PANTOLOC [Concomitant]
     Route: 065
  10. CYANOCOBALAMIN [Concomitant]
     Route: 065
  11. FLUNITRAZEPAM [Concomitant]
     Route: 065
  12. EMCONCOR [Concomitant]
     Route: 065

REACTIONS (1)
  - SALMONELLA SEPSIS [None]
